FAERS Safety Report 20845791 (Version 2)
Quarter: 2022Q2

REPORT INFORMATION
  Report Type: Report from Study
  Country: AR (occurrence: AR)
  Receive Date: 20220518
  Receipt Date: 20220523
  Transmission Date: 20220721
  Serious: Yes (Death, Hospitalization)
  Sender: FDA-Public Use
  Company Number: AR-GLAXOSMITHKLINE-AR2022075127

PATIENT

DRUGS (173)
  1. CARBOPLATIN [Suspect]
     Active Substance: CARBOPLATIN
     Indication: Non-small cell lung cancer
     Dosage: DOSE AT CYCLE 1 - DAY 1
     Dates: start: 20210701, end: 20210701
  2. CISPLATIN [Suspect]
     Active Substance: CISPLATIN
     Indication: Non-small cell lung cancer
     Dosage: DOSE AT CYCLE 1 - DAY 1
     Dates: start: 20210701, end: 20210701
  3. DOSTARLIMAB [Suspect]
     Active Substance: DOSTARLIMAB
     Indication: Non-small cell lung cancer
     Dosage: DOSE AT CYCLE 1 - DAY 1
     Dates: start: 20210701, end: 20210701
  4. PEMBROLIZUMAB [Suspect]
     Active Substance: PEMBROLIZUMAB
     Indication: Non-small cell lung cancer
     Dosage: DOSE AT CYCLE 1 - DAY 1
     Dates: start: 20210701, end: 20210701
  5. PEMETREXED [Suspect]
     Active Substance: PEMETREXED
     Indication: Non-small cell lung cancer
     Dosage: DOSE AT CYCLE 1 - DAY 1
     Dates: start: 20210701, end: 20210701
  6. CARBOPLATIN [Suspect]
     Active Substance: CARBOPLATIN
     Dosage: DOSE AT DAY 1
     Dates: start: 20210722, end: 20210722
  7. CISPLATIN [Suspect]
     Active Substance: CISPLATIN
     Dosage: DOSE AT DAY 1
     Dates: start: 20210722, end: 20210722
  8. DOSTARLIMAB [Suspect]
     Active Substance: DOSTARLIMAB
     Dosage: DOSE AT DAY 1
     Dates: start: 20210722, end: 20210722
  9. PEMBROLIZUMAB [Suspect]
     Active Substance: PEMBROLIZUMAB
     Dosage: DOSE AT DAY 1
     Dates: start: 20210722, end: 20210722
  10. PEMETREXED [Suspect]
     Active Substance: PEMETREXED
     Dosage: DOSE AT DAY 1
     Dates: start: 20210722, end: 20210722
  11. CARBOPLATIN [Suspect]
     Active Substance: CARBOPLATIN
     Dosage: DOSE AT DAY 1
     Dates: start: 20210812, end: 20210812
  12. CISPLATIN [Suspect]
     Active Substance: CISPLATIN
     Dosage: DOSE AT DAY 1
     Dates: start: 20210812, end: 20210812
  13. DOSTARLIMAB [Suspect]
     Active Substance: DOSTARLIMAB
     Dosage: DOSE AT DAY 1
     Dates: start: 20210812, end: 20210812
  14. PEMBROLIZUMAB [Suspect]
     Active Substance: PEMBROLIZUMAB
     Dosage: DOSE AT DAY 1
     Dates: start: 20210812, end: 20210812
  15. PEMETREXED [Suspect]
     Active Substance: PEMETREXED
     Dosage: DOSE AT DAY 1
     Dates: start: 20210812, end: 20210812
  16. CARBOPLATIN [Suspect]
     Active Substance: CARBOPLATIN
     Dosage: DOSE AT DAY 1
     Dates: start: 20210902, end: 20210902
  17. CISPLATIN [Suspect]
     Active Substance: CISPLATIN
     Dosage: DOSE AT DAY 1
     Dates: start: 20210902, end: 20210902
  18. DOSTARLIMAB [Suspect]
     Active Substance: DOSTARLIMAB
     Dosage: DOSE AT DAY 1
     Dates: start: 20210902, end: 20210902
  19. PEMBROLIZUMAB [Suspect]
     Active Substance: PEMBROLIZUMAB
     Dosage: DOSE AT DAY 1
     Dates: start: 20210902, end: 20210902
  20. PEMETREXED [Suspect]
     Active Substance: PEMETREXED
     Dosage: DOSE AT DAY 1
     Dates: start: 20210902, end: 20210902
  21. CARBOPLATIN [Suspect]
     Active Substance: CARBOPLATIN
     Dosage: DOSE AT DAY 1
     Dates: start: 20210923, end: 20210923
  22. CISPLATIN [Suspect]
     Active Substance: CISPLATIN
     Dosage: DOSE AT DAY 1
     Dates: start: 20210923, end: 20210923
  23. DOSTARLIMAB [Suspect]
     Active Substance: DOSTARLIMAB
     Dosage: DOSE AT DAY 1
     Dates: start: 20210923, end: 20210923
  24. PEMBROLIZUMAB [Suspect]
     Active Substance: PEMBROLIZUMAB
     Dosage: DOSE AT DAY 1
     Dates: start: 20210923, end: 20210923
  25. PEMETREXED [Suspect]
     Active Substance: PEMETREXED
     Dosage: DOSE AT DAY 1
     Dates: start: 20210923, end: 20210923
  26. CARBOPLATIN [Suspect]
     Active Substance: CARBOPLATIN
     Dosage: DOSE AT DAY 1
     Dates: start: 20211021, end: 20211021
  27. CISPLATIN [Suspect]
     Active Substance: CISPLATIN
     Dosage: DOSE AT DAY 1
     Dates: start: 20211021, end: 20211021
  28. DOSTARLIMAB [Suspect]
     Active Substance: DOSTARLIMAB
     Dosage: DOSE AT DAY 1
     Dates: start: 20211021, end: 20211021
  29. PEMBROLIZUMAB [Suspect]
     Active Substance: PEMBROLIZUMAB
     Dosage: DOSE AT DAY 1
     Dates: start: 20211021, end: 20211021
  30. PEMETREXED [Suspect]
     Active Substance: PEMETREXED
     Dosage: DOSE AT DAY 1
     Dates: start: 20211021, end: 20211021
  31. CARBOPLATIN [Suspect]
     Active Substance: CARBOPLATIN
     Dosage: DOSE AT DAY 1
     Dates: start: 20211111, end: 20211111
  32. CISPLATIN [Suspect]
     Active Substance: CISPLATIN
     Dosage: DOSE AT DAY 1
     Dates: start: 20211111, end: 20211111
  33. DOSTARLIMAB [Suspect]
     Active Substance: DOSTARLIMAB
     Dosage: DOSE AT DAY 1
     Dates: start: 20211111, end: 20211111
  34. PEMBROLIZUMAB [Suspect]
     Active Substance: PEMBROLIZUMAB
     Dosage: DOSE AT DAY 1
     Dates: start: 20211111, end: 20211111
  35. PEMETREXED [Suspect]
     Active Substance: PEMETREXED
     Dosage: DOSE AT DAY 1
     Dates: start: 20211111, end: 20211111
  36. CARBOPLATIN [Suspect]
     Active Substance: CARBOPLATIN
     Dosage: DOSE AT DAY 1
     Dates: start: 20211202, end: 20211202
  37. CISPLATIN [Suspect]
     Active Substance: CISPLATIN
     Dosage: DOSE AT DAY 1
     Dates: start: 20211202, end: 20211202
  38. DOSTARLIMAB [Suspect]
     Active Substance: DOSTARLIMAB
     Dosage: DOSE AT DAY 1
     Dates: start: 20211202, end: 20211202
  39. PEMBROLIZUMAB [Suspect]
     Active Substance: PEMBROLIZUMAB
     Dosage: DOSE AT DAY 1
     Dates: start: 20211202, end: 20211202
  40. PEMETREXED [Suspect]
     Active Substance: PEMETREXED
     Dosage: DOSE AT DAY 1
     Dates: start: 20211202, end: 20211202
  41. CARBOPLATIN [Suspect]
     Active Substance: CARBOPLATIN
     Dosage: DOSE AT DAY 1
     Dates: start: 20211223, end: 20211223
  42. CISPLATIN [Suspect]
     Active Substance: CISPLATIN
     Dosage: DOSE AT DAY 1
     Dates: start: 20211223, end: 20211223
  43. DOSTARLIMAB [Suspect]
     Active Substance: DOSTARLIMAB
     Dosage: DOSE AT DAY 1
     Dates: start: 20211223, end: 20211223
  44. PEMBROLIZUMAB [Suspect]
     Active Substance: PEMBROLIZUMAB
     Dosage: DOSE AT DAY 1
     Dates: start: 20211223, end: 20211223
  45. PEMETREXED [Suspect]
     Active Substance: PEMETREXED
     Dosage: DOSE AT DAY 1
     Dates: start: 20211223, end: 20211223
  46. CARBOPLATIN [Suspect]
     Active Substance: CARBOPLATIN
     Dosage: DOSE AT DAY 1
     Dates: start: 20220113, end: 20220113
  47. CISPLATIN [Suspect]
     Active Substance: CISPLATIN
     Dosage: DOSE AT DAY 1
     Dates: start: 20220113, end: 20220113
  48. DOSTARLIMAB [Suspect]
     Active Substance: DOSTARLIMAB
     Dosage: DOSE AT DAY 1
     Dates: start: 20220113, end: 20220113
  49. PEMBROLIZUMAB [Suspect]
     Active Substance: PEMBROLIZUMAB
     Dosage: DOSE AT DAY 1
     Dates: start: 20220113, end: 20220113
  50. PEMETREXED [Suspect]
     Active Substance: PEMETREXED
     Dosage: DOSE AT DAY 1
     Dates: start: 20220113, end: 20220113
  51. CARBOPLATIN [Suspect]
     Active Substance: CARBOPLATIN
     Dosage: DOSE AT DAY 1
     Dates: start: 20220204, end: 20220204
  52. CISPLATIN [Suspect]
     Active Substance: CISPLATIN
     Dosage: DOSE AT DAY 1
     Dates: start: 20220204, end: 20220204
  53. DOSTARLIMAB [Suspect]
     Active Substance: DOSTARLIMAB
     Dosage: DOSE AT DAY 1
     Dates: start: 20220204, end: 20220204
  54. PEMBROLIZUMAB [Suspect]
     Active Substance: PEMBROLIZUMAB
     Dosage: DOSE AT DAY 1
     Dates: start: 20220204, end: 20220204
  55. PEMETREXED [Suspect]
     Active Substance: PEMETREXED
     Dosage: DOSE AT DAY 1
     Dates: start: 20220204, end: 20220204
  56. CARBOPLATIN [Suspect]
     Active Substance: CARBOPLATIN
     Dosage: DOSE AT DAY 1
     Dates: start: 20220224, end: 20220224
  57. CISPLATIN [Suspect]
     Active Substance: CISPLATIN
     Dosage: DOSE AT DAY 1
     Dates: start: 20220224, end: 20220224
  58. DOSTARLIMAB [Suspect]
     Active Substance: DOSTARLIMAB
     Dosage: DOSE AT DAY 1
     Dates: start: 20220224, end: 20220224
  59. PEMBROLIZUMAB [Suspect]
     Active Substance: PEMBROLIZUMAB
     Dosage: DOSE AT DAY 1
     Dates: start: 20220224, end: 20220224
  60. PEMETREXED [Suspect]
     Active Substance: PEMETREXED
     Dosage: DOSE AT DAY 1
     Dates: start: 20220224, end: 20220224
  61. CARBOPLATIN [Suspect]
     Active Substance: CARBOPLATIN
     Dosage: DOSE AT DAY 1
     Dates: start: 20220317, end: 20220317
  62. CISPLATIN [Suspect]
     Active Substance: CISPLATIN
     Dosage: DOSE AT DAY 1
     Dates: start: 20220317, end: 20220317
  63. DOSTARLIMAB [Suspect]
     Active Substance: DOSTARLIMAB
     Dosage: DOSE AT DAY 1
     Dates: start: 20220317, end: 20220317
  64. PEMBROLIZUMAB [Suspect]
     Active Substance: PEMBROLIZUMAB
     Dosage: DOSE AT DAY 1
     Dates: start: 20220317, end: 20220317
  65. PEMETREXED [Suspect]
     Active Substance: PEMETREXED
     Dosage: DOSE AT DAY 1
     Dates: start: 20220317, end: 20220317
  66. CARBOPLATIN [Suspect]
     Active Substance: CARBOPLATIN
     Dosage: DOSE AT DAY 1
     Dates: start: 20220407, end: 20220407
  67. CISPLATIN [Suspect]
     Active Substance: CISPLATIN
     Dosage: DOSE AT DAY 1
     Dates: start: 20220407, end: 20220407
  68. DOSTARLIMAB [Suspect]
     Active Substance: DOSTARLIMAB
     Dosage: DOSE AT DAY 1
     Dates: start: 20220407, end: 20220407
  69. PEMBROLIZUMAB [Suspect]
     Active Substance: PEMBROLIZUMAB
     Dosage: DOSE AT DAY 1
     Dates: start: 20220407, end: 20220407
  70. PEMETREXED [Suspect]
     Active Substance: PEMETREXED
     Dosage: DOSE AT DAY 1
     Dates: start: 20220407, end: 20220407
  71. CARBOPLATIN [Suspect]
     Active Substance: CARBOPLATIN
     Dosage: DOSE AT DAY 1
     Dates: start: 20220428, end: 20220428
  72. CISPLATIN [Suspect]
     Active Substance: CISPLATIN
     Dosage: DOSE AT DAY 1
     Dates: start: 20220428, end: 20220428
  73. DOSTARLIMAB [Suspect]
     Active Substance: DOSTARLIMAB
     Dosage: DOSE AT DAY 1
     Dates: start: 20220428, end: 20220428
  74. PEMBROLIZUMAB [Suspect]
     Active Substance: PEMBROLIZUMAB
     Dosage: DOSE AT DAY 1
     Dates: start: 20220428, end: 20220428
  75. PEMETREXED [Suspect]
     Active Substance: PEMETREXED
     Dosage: DOSE AT DAY 1
     Dates: start: 20220428, end: 20220428
  76. CARBOPLATIN [Suspect]
     Active Substance: CARBOPLATIN
     Indication: Non-small cell lung cancer
     Dosage: DOSE AT CYCLE 1 - DAY 1
     Route: 042
     Dates: start: 20210701, end: 20210701
  77. CISPLATIN [Suspect]
     Active Substance: CISPLATIN
     Indication: Non-small cell lung cancer
     Dosage: DOSE AT CYCLE 1 - DAY 1
     Route: 042
     Dates: start: 20210701, end: 20210701
  78. DOSTARLIMAB [Suspect]
     Active Substance: DOSTARLIMAB
     Indication: Non-small cell lung cancer
     Dosage: DOSE AT CYCLE 1 - DAY 1
     Route: 042
     Dates: start: 20210701, end: 20210701
  79. PEMBROLIZUMAB [Suspect]
     Active Substance: PEMBROLIZUMAB
     Indication: Non-small cell lung cancer
     Dosage: DOSE AT CYCLE 1 - DAY 1
     Route: 042
     Dates: start: 20210701, end: 20210701
  80. PEMETREXED [Suspect]
     Active Substance: PEMETREXED
     Indication: Non-small cell lung cancer
     Dosage: DOSE AT CYCLE 1 - DAY 1
     Route: 042
     Dates: start: 20210701, end: 20210701
  81. CARBOPLATIN [Suspect]
     Active Substance: CARBOPLATIN
     Dosage: DOSE AT DAY 1
     Route: 042
     Dates: start: 20210722, end: 20210722
  82. CISPLATIN [Suspect]
     Active Substance: CISPLATIN
     Dosage: DOSE AT DAY 1
     Route: 042
     Dates: start: 20210722, end: 20210722
  83. DOSTARLIMAB [Suspect]
     Active Substance: DOSTARLIMAB
     Dosage: DOSE AT DAY 1
     Route: 042
     Dates: start: 20210722, end: 20210722
  84. PEMBROLIZUMAB [Suspect]
     Active Substance: PEMBROLIZUMAB
     Dosage: DOSE AT DAY 1
     Route: 042
     Dates: start: 20210722, end: 20210722
  85. PEMETREXED [Suspect]
     Active Substance: PEMETREXED
     Dosage: DOSE AT DAY 1
     Route: 042
     Dates: start: 20210722, end: 20210722
  86. CARBOPLATIN [Suspect]
     Active Substance: CARBOPLATIN
     Dosage: DOSE AT DAY 1
     Route: 042
     Dates: start: 20210812, end: 20210812
  87. CISPLATIN [Suspect]
     Active Substance: CISPLATIN
     Dosage: DOSE AT DAY 1
     Route: 042
     Dates: start: 20210812, end: 20210812
  88. DOSTARLIMAB [Suspect]
     Active Substance: DOSTARLIMAB
     Dosage: DOSE AT DAY 1
     Route: 042
     Dates: start: 20210812, end: 20210812
  89. PEMBROLIZUMAB [Suspect]
     Active Substance: PEMBROLIZUMAB
     Dosage: DOSE AT DAY 1
     Route: 042
     Dates: start: 20210812, end: 20210812
  90. PEMETREXED [Suspect]
     Active Substance: PEMETREXED
     Dosage: DOSE AT DAY 1
     Route: 042
     Dates: start: 20210812, end: 20210812
  91. CARBOPLATIN [Suspect]
     Active Substance: CARBOPLATIN
     Dosage: DOSE AT DAY 1
     Route: 042
     Dates: start: 20210902, end: 20210902
  92. CISPLATIN [Suspect]
     Active Substance: CISPLATIN
     Dosage: DOSE AT DAY 1
     Route: 042
     Dates: start: 20210902, end: 20210902
  93. DOSTARLIMAB [Suspect]
     Active Substance: DOSTARLIMAB
     Dosage: DOSE AT DAY 1
     Route: 042
     Dates: start: 20210902, end: 20210902
  94. PEMBROLIZUMAB [Suspect]
     Active Substance: PEMBROLIZUMAB
     Dosage: DOSE AT DAY 1
     Route: 042
     Dates: start: 20210902, end: 20210902
  95. PEMETREXED [Suspect]
     Active Substance: PEMETREXED
     Dosage: DOSE AT DAY 1
     Route: 042
     Dates: start: 20210902, end: 20210902
  96. CARBOPLATIN [Suspect]
     Active Substance: CARBOPLATIN
     Dosage: DOSE AT DAY 1
     Route: 042
     Dates: start: 20210923, end: 20210923
  97. CISPLATIN [Suspect]
     Active Substance: CISPLATIN
     Dosage: DOSE AT DAY 1
     Route: 042
     Dates: start: 20210923, end: 20210923
  98. DOSTARLIMAB [Suspect]
     Active Substance: DOSTARLIMAB
     Dosage: DOSE AT DAY 1
     Route: 042
     Dates: start: 20210923, end: 20210923
  99. PEMBROLIZUMAB [Suspect]
     Active Substance: PEMBROLIZUMAB
     Dosage: DOSE AT DAY 1
     Route: 042
     Dates: start: 20210923, end: 20210923
  100. PEMETREXED [Suspect]
     Active Substance: PEMETREXED
     Dosage: DOSE AT DAY 1
     Route: 042
     Dates: start: 20210923, end: 20210923
  101. CARBOPLATIN [Suspect]
     Active Substance: CARBOPLATIN
     Dosage: DOSE AT DAY 1
     Route: 042
     Dates: start: 20211021, end: 20211021
  102. CISPLATIN [Suspect]
     Active Substance: CISPLATIN
     Dosage: DOSE AT DAY 1
     Route: 042
     Dates: start: 20211021, end: 20211021
  103. DOSTARLIMAB [Suspect]
     Active Substance: DOSTARLIMAB
     Dosage: DOSE AT DAY 1
     Route: 042
     Dates: start: 20211021, end: 20211021
  104. PEMBROLIZUMAB [Suspect]
     Active Substance: PEMBROLIZUMAB
     Dosage: DOSE AT DAY 1
     Route: 042
     Dates: start: 20211021, end: 20211021
  105. PEMETREXED [Suspect]
     Active Substance: PEMETREXED
     Dosage: DOSE AT DAY 1
     Route: 042
     Dates: start: 20211021, end: 20211021
  106. CARBOPLATIN [Suspect]
     Active Substance: CARBOPLATIN
     Dosage: DOSE AT DAY 1
     Route: 042
     Dates: start: 20211111, end: 20211111
  107. CISPLATIN [Suspect]
     Active Substance: CISPLATIN
     Dosage: DOSE AT DAY 1
     Route: 042
     Dates: start: 20211111, end: 20211111
  108. DOSTARLIMAB [Suspect]
     Active Substance: DOSTARLIMAB
     Dosage: DOSE AT DAY 1
     Route: 042
     Dates: start: 20211111, end: 20211111
  109. PEMBROLIZUMAB [Suspect]
     Active Substance: PEMBROLIZUMAB
     Dosage: DOSE AT DAY 1
     Route: 042
     Dates: start: 20211111, end: 20211111
  110. PEMETREXED [Suspect]
     Active Substance: PEMETREXED
     Dosage: DOSE AT DAY 1
     Route: 042
     Dates: start: 20211111, end: 20211111
  111. CARBOPLATIN [Suspect]
     Active Substance: CARBOPLATIN
     Dosage: DOSE AT DAY 1
     Route: 042
     Dates: start: 20211202, end: 20211202
  112. CISPLATIN [Suspect]
     Active Substance: CISPLATIN
     Dosage: DOSE AT DAY 1
     Route: 042
     Dates: start: 20211202, end: 20211202
  113. DOSTARLIMAB [Suspect]
     Active Substance: DOSTARLIMAB
     Dosage: DOSE AT DAY 1
     Route: 042
     Dates: start: 20211202, end: 20211202
  114. PEMBROLIZUMAB [Suspect]
     Active Substance: PEMBROLIZUMAB
     Dosage: DOSE AT DAY 1
     Route: 042
     Dates: start: 20211202, end: 20211202
  115. PEMETREXED [Suspect]
     Active Substance: PEMETREXED
     Dosage: DOSE AT DAY 1
     Route: 042
     Dates: start: 20211202, end: 20211202
  116. CARBOPLATIN [Suspect]
     Active Substance: CARBOPLATIN
     Dosage: DOSE AT DAY 1
     Route: 042
     Dates: start: 20211223, end: 20211223
  117. CISPLATIN [Suspect]
     Active Substance: CISPLATIN
     Dosage: DOSE AT DAY 1
     Route: 042
     Dates: start: 20211223, end: 20211223
  118. DOSTARLIMAB [Suspect]
     Active Substance: DOSTARLIMAB
     Dosage: DOSE AT DAY 1
     Route: 042
     Dates: start: 20211223, end: 20211223
  119. PEMBROLIZUMAB [Suspect]
     Active Substance: PEMBROLIZUMAB
     Dosage: DOSE AT DAY 1
     Route: 042
     Dates: start: 20211223, end: 20211223
  120. PEMETREXED [Suspect]
     Active Substance: PEMETREXED
     Dosage: DOSE AT DAY 1
     Route: 042
     Dates: start: 20211223, end: 20211223
  121. CARBOPLATIN [Suspect]
     Active Substance: CARBOPLATIN
     Dosage: DOSE AT DAY 1
     Route: 042
     Dates: start: 20220113, end: 20220113
  122. CISPLATIN [Suspect]
     Active Substance: CISPLATIN
     Dosage: DOSE AT DAY 1
     Route: 042
     Dates: start: 20220113, end: 20220113
  123. DOSTARLIMAB [Suspect]
     Active Substance: DOSTARLIMAB
     Dosage: DOSE AT DAY 1
     Route: 042
     Dates: start: 20220113, end: 20220113
  124. PEMBROLIZUMAB [Suspect]
     Active Substance: PEMBROLIZUMAB
     Dosage: DOSE AT DAY 1
     Route: 042
     Dates: start: 20220113, end: 20220113
  125. PEMETREXED [Suspect]
     Active Substance: PEMETREXED
     Dosage: DOSE AT DAY 1
     Route: 042
     Dates: start: 20220113, end: 20220113
  126. CARBOPLATIN [Suspect]
     Active Substance: CARBOPLATIN
     Dosage: DOSE AT DAY 1
     Route: 042
     Dates: start: 20220204, end: 20220204
  127. CISPLATIN [Suspect]
     Active Substance: CISPLATIN
     Dosage: DOSE AT DAY 1
     Route: 042
     Dates: start: 20220204, end: 20220204
  128. DOSTARLIMAB [Suspect]
     Active Substance: DOSTARLIMAB
     Dosage: DOSE AT DAY 1
     Route: 042
     Dates: start: 20220204, end: 20220204
  129. PEMBROLIZUMAB [Suspect]
     Active Substance: PEMBROLIZUMAB
     Dosage: DOSE AT DAY 1
     Route: 042
     Dates: start: 20220204, end: 20220204
  130. PEMETREXED [Suspect]
     Active Substance: PEMETREXED
     Dosage: DOSE AT DAY 1
     Route: 042
     Dates: start: 20220204, end: 20220204
  131. CARBOPLATIN [Suspect]
     Active Substance: CARBOPLATIN
     Dosage: DOSE AT DAY 1
     Route: 042
     Dates: start: 20220224, end: 20220224
  132. CISPLATIN [Suspect]
     Active Substance: CISPLATIN
     Dosage: DOSE AT DAY 1
     Route: 042
     Dates: start: 20220224, end: 20220224
  133. DOSTARLIMAB [Suspect]
     Active Substance: DOSTARLIMAB
     Dosage: DOSE AT DAY 1
     Route: 042
     Dates: start: 20220224, end: 20220224
  134. PEMBROLIZUMAB [Suspect]
     Active Substance: PEMBROLIZUMAB
     Dosage: DOSE AT DAY 1
     Route: 042
     Dates: start: 20220224, end: 20220224
  135. PEMETREXED [Suspect]
     Active Substance: PEMETREXED
     Dosage: DOSE AT DAY 1
     Route: 042
     Dates: start: 20220224, end: 20220224
  136. CARBOPLATIN [Suspect]
     Active Substance: CARBOPLATIN
     Dosage: DOSE AT DAY 1
     Route: 042
     Dates: start: 20220317, end: 20220317
  137. CISPLATIN [Suspect]
     Active Substance: CISPLATIN
     Dosage: DOSE AT DAY 1
     Route: 042
     Dates: start: 20220317, end: 20220317
  138. DOSTARLIMAB [Suspect]
     Active Substance: DOSTARLIMAB
     Dosage: DOSE AT DAY 1
     Route: 042
     Dates: start: 20220317, end: 20220317
  139. PEMBROLIZUMAB [Suspect]
     Active Substance: PEMBROLIZUMAB
     Dosage: DOSE AT DAY 1
     Route: 042
     Dates: start: 20220317, end: 20220317
  140. PEMETREXED [Suspect]
     Active Substance: PEMETREXED
     Dosage: DOSE AT DAY 1
     Route: 042
     Dates: start: 20220317, end: 20220317
  141. CARBOPLATIN [Suspect]
     Active Substance: CARBOPLATIN
     Dosage: DOSE AT DAY 1
     Route: 042
     Dates: start: 20220407, end: 20220407
  142. CISPLATIN [Suspect]
     Active Substance: CISPLATIN
     Dosage: DOSE AT DAY 1
     Route: 042
     Dates: start: 20220407, end: 20220407
  143. DOSTARLIMAB [Suspect]
     Active Substance: DOSTARLIMAB
     Dosage: DOSE AT DAY 1
     Route: 042
     Dates: start: 20220407, end: 20220407
  144. PEMBROLIZUMAB [Suspect]
     Active Substance: PEMBROLIZUMAB
     Dosage: DOSE AT DAY 1
     Route: 042
     Dates: start: 20220407, end: 20220407
  145. PEMETREXED [Suspect]
     Active Substance: PEMETREXED
     Dosage: DOSE AT DAY 1
     Route: 042
     Dates: start: 20220407, end: 20220407
  146. CARBOPLATIN [Suspect]
     Active Substance: CARBOPLATIN
     Dosage: DOSE AT DAY 1
     Route: 042
     Dates: start: 20220428, end: 20220428
  147. CISPLATIN [Suspect]
     Active Substance: CISPLATIN
     Dosage: DOSE AT DAY 1
     Route: 042
     Dates: start: 20220428, end: 20220428
  148. DOSTARLIMAB [Suspect]
     Active Substance: DOSTARLIMAB
     Dosage: DOSE AT DAY 1
     Route: 042
     Dates: start: 20220428, end: 20220428
  149. PEMBROLIZUMAB [Suspect]
     Active Substance: PEMBROLIZUMAB
     Dosage: DOSE AT DAY 1
     Route: 042
     Dates: start: 20220428, end: 20220428
  150. PEMETREXED [Suspect]
     Active Substance: PEMETREXED
     Dosage: DOSE AT DAY 1
     Route: 042
     Dates: start: 20220428, end: 20220428
  151. CARBOPLATIN [Suspect]
     Active Substance: CARBOPLATIN
     Indication: Non-small cell lung cancer
     Dosage: DOSE AT CYCLE 1 - DAY 1
     Route: 042
     Dates: start: 20210701, end: 20210701
  152. CISPLATIN [Suspect]
     Active Substance: CISPLATIN
     Indication: Non-small cell lung cancer
     Dosage: DOSE AT CYCLE 1 - DAY 1
     Route: 042
     Dates: start: 20210701, end: 20210701
  153. DOSTARLIMAB [Suspect]
     Active Substance: DOSTARLIMAB
     Indication: Non-small cell lung cancer
     Dosage: DOSE AT CYCLE 1 - DAY 1
     Route: 042
     Dates: start: 20210701, end: 20210701
  154. PEMBROLIZUMAB [Suspect]
     Active Substance: PEMBROLIZUMAB
     Indication: Non-small cell lung cancer
     Dosage: DOSE AT CYCLE 1 - DAY 1
     Route: 042
     Dates: start: 20210701, end: 20210701
  155. PEMETREXED [Suspect]
     Active Substance: PEMETREXED
     Indication: Non-small cell lung cancer
     Dosage: DOSE AT CYCLE 1 - DAY 1
     Route: 042
     Dates: start: 20210701, end: 20210701
  156. CARBOPLATIN [Suspect]
     Active Substance: CARBOPLATIN
     Dosage: DOSE AT DAY 1
     Route: 042
     Dates: start: 20210722, end: 20210722
  157. CISPLATIN [Suspect]
     Active Substance: CISPLATIN
     Dosage: DOSE AT DAY 1
     Route: 042
     Dates: start: 20210722, end: 20210722
  158. DOSTARLIMAB [Suspect]
     Active Substance: DOSTARLIMAB
     Dosage: DOSE AT DAY 1
     Route: 042
     Dates: start: 20210722, end: 20210722
  159. PEMBROLIZUMAB [Suspect]
     Active Substance: PEMBROLIZUMAB
     Dosage: DOSE AT DAY 1
     Route: 042
     Dates: start: 20210722, end: 20210722
  160. PEMETREXED [Suspect]
     Active Substance: PEMETREXED
     Dosage: DOSE AT DAY 1
     Route: 042
     Dates: start: 20210722, end: 20210722
  161. CARBOPLATIN [Suspect]
     Active Substance: CARBOPLATIN
     Dosage: DOSE AT DAY 1
     Route: 042
     Dates: start: 20210812, end: 20210812
  162. CISPLATIN [Suspect]
     Active Substance: CISPLATIN
     Dosage: DOSE AT DAY 1
     Route: 042
     Dates: start: 20210812, end: 20210812
  163. DOSTARLIMAB [Suspect]
     Active Substance: DOSTARLIMAB
     Dosage: DOSE AT DAY 1
     Route: 042
     Dates: start: 20210812, end: 20210812
  164. PEMBROLIZUMAB [Suspect]
     Active Substance: PEMBROLIZUMAB
     Dosage: DOSE AT DAY 1
     Route: 042
     Dates: start: 20210812, end: 20210812
  165. PEMETREXED [Suspect]
     Active Substance: PEMETREXED
     Dosage: DOSE AT DAY 1
     Route: 042
     Dates: start: 20210812, end: 20210812
  166. CARBOPLATIN [Suspect]
     Active Substance: CARBOPLATIN
     Dosage: DOSE AT DAY 1
     Route: 042
     Dates: start: 20210902, end: 20210902
  167. CISPLATIN [Suspect]
     Active Substance: CISPLATIN
     Dosage: DOSE AT DAY 1
     Route: 042
     Dates: start: 20210902, end: 20210902
  168. DOSTARLIMAB [Suspect]
     Active Substance: DOSTARLIMAB
     Dosage: DOSE AT DAY 1
     Route: 042
     Dates: start: 20210902, end: 20210902
  169. PEMBROLIZUMAB [Suspect]
     Active Substance: PEMBROLIZUMAB
     Dosage: DOSE AT DAY 1
     Route: 042
     Dates: start: 20210902, end: 20210902
  170. PEMETREXED [Suspect]
     Active Substance: PEMETREXED
     Dosage: DOSE AT DAY 1
     Route: 042
     Dates: start: 20210902, end: 20210902
  171. FILGRASTIIMI [Concomitant]
     Indication: Pancytopenia
  172. RED BLOOD CELL TRANSFUSION [Concomitant]
     Indication: Anaemia
  173. RED BLOOD CELL TRANSFUSION [Concomitant]
     Indication: Thrombocytopenia

REACTIONS (1)
  - Urosepsis [Fatal]

NARRATIVE: CASE EVENT DATE: 20220505
